FAERS Safety Report 6576726-0 (Version None)
Quarter: 2010Q1

REPORT INFORMATION
  Report Type: 
  Country: None (occurrence: None)
  Receive Date: 20100210
  Receipt Date: 20100114
  Transmission Date: 20100710
  Serious: Yes (Life-Threatening, Hospitalization)
  Sender: FDA-Public Use
  Company Number: DK-SANOFI-AVENTIS-2010SA001190

PATIENT
  Age: 60 Year
  Sex: Male

DRUGS (12)
  1. INSULIN GLARGINE [Suspect]
     Route: 058
     Dates: start: 20050906, end: 20091227
  2. OPTIPEN [Suspect]
  3. BLINDED THERAPY [Suspect]
     Dates: start: 20050906
  4. MORPHINE [Suspect]
  5. CARDIAC THERAPY [Suspect]
  6. TRAMADOL [Suspect]
  7. CARVEDILOL [Suspect]
     Dosage: 25(NOS)
     Dates: start: 20050301
  8. ISOSORBIDE MONONITRATE [Concomitant]
     Dosage: 60 (NOS)
     Dates: start: 20061201
  9. CLOPIDOGREL [Concomitant]
     Dosage: 75 (NOS)
     Dates: start: 20050301
  10. ZARATOR ^PFIZER^ [Concomitant]
     Dosage: 80 (NOS)
     Dates: start: 20050301
  11. ASPIRIN [Concomitant]
     Dosage: 75 (NOS)
     Dates: start: 20021101
  12. AMLODIPINE [Concomitant]
     Dosage: 10 (NOS)
     Dates: start: 20050301

REACTIONS (6)
  - HYPOGLYCAEMIA [None]
  - INTENTIONAL OVERDOSE [None]
  - LISTLESS [None]
  - MYOCARDIAL INFARCTION [None]
  - SOMNOLENCE [None]
  - SUICIDE ATTEMPT [None]
